FAERS Safety Report 10441305 (Version 5)
Quarter: 2017Q2

REPORT INFORMATION
  Report Type: Report from Study
  Country: None (occurrence: BR)
  Receive Date: 20140909
  Receipt Date: 20170519
  Transmission Date: 20170829
  Serious: Yes (Life-Threatening, Hospitalization, Other)
  Sender: FDA-Public Use
  Company Number: BR-ABBVIE-13P-020-1075864-00

PATIENT
  Age: 66 Year
  Sex: Female
  Weight: 63 kg

DRUGS (15)
  1. OSTEONUTRI [Concomitant]
     Indication: OSTEOPOROSIS
     Route: 048
     Dates: start: 2012
  2. OSTEONUTRI [Concomitant]
     Indication: BONE DISORDER
  3. OMEPRAZOLE. [Concomitant]
     Active Substance: OMEPRAZOLE
     Indication: GASTRIC DISORDER
     Route: 048
     Dates: start: 2012
  4. VERTIX [Concomitant]
     Indication: LABYRINTHITIS
  5. HUMIRA [Suspect]
     Active Substance: ADALIMUMAB
     Indication: RHEUMATOID ARTHRITIS
     Route: 058
     Dates: start: 20100101
  6. HUMIRA [Suspect]
     Active Substance: ADALIMUMAB
     Route: 058
  7. PRELONE [Concomitant]
     Active Substance: PREDNISOLONE
     Indication: ARTHRITIS
  8. RIVOTRIL [Concomitant]
     Active Substance: CLONAZEPAM
     Indication: ANXIOLYTIC THERAPY
     Dosage: AT NIGHT
     Route: 048
     Dates: start: 2011
  9. PROTOS [Concomitant]
     Indication: OSTEOPOROSIS
     Route: 048
     Dates: start: 2012
  10. PROTOS [Concomitant]
     Indication: BONE DISORDER
  11. HUMIRA [Suspect]
     Active Substance: ADALIMUMAB
     Route: 058
  12. PRELONE [Concomitant]
     Active Substance: PREDNISOLONE
     Indication: BRONCHITIS
  13. VERTIX [Concomitant]
     Indication: DIZZINESS
  14. PRELONE [Concomitant]
     Active Substance: PREDNISOLONE
     Indication: RHEUMATIC DISORDER
     Route: 048
  15. CLONAZEPAN [Concomitant]
     Active Substance: CLONAZEPAM
     Indication: SLEEP DISORDER THERAPY
     Route: 048
     Dates: start: 2012

REACTIONS (17)
  - Hip fracture [Not Recovered/Not Resolved]
  - Pain in extremity [Recovering/Resolving]
  - X-ray abnormal [Unknown]
  - Procedural pain [Recovering/Resolving]
  - Bursitis [Recovering/Resolving]
  - Fall [Recovered/Resolved]
  - Blood pressure increased [Unknown]
  - Pain in extremity [Not Recovered/Not Resolved]
  - Cardiac arrest [Unknown]
  - Patient-device incompatibility [Unknown]
  - Fatigue [Not Recovered/Not Resolved]
  - Depression [Unknown]
  - Post procedural complication [Recovering/Resolving]
  - Complication associated with device [Unknown]
  - Muscle rigidity [Recovering/Resolving]
  - Haemoglobin decreased [Unknown]
  - Gait disturbance [Recovering/Resolving]

NARRATIVE: CASE EVENT DATE: 20101229
